FAERS Safety Report 8714439 (Version 2)
Quarter: 2012Q4

REPORT INFORMATION
  Report Type: 
  Country: US (occurrence: US)
  Receive Date: 20120809
  Receipt Date: 20121105
  Transmission Date: 20130627
  Serious: Yes (Other)
  Sender: FDA-Public Use
  Company Number: US-PFIZER INC-2012191522

PATIENT
  Age: 69 Year
  Sex: Female
  Weight: 77.1 kg

DRUGS (4)
  1. LYRICA [Suspect]
     Indication: NEUROMYOPATHY
     Dosage: 100 mg, 3x/day
     Route: 048
  2. LYRICA [Suspect]
     Dosage: UNK
     Route: 048
  3. HYDROCODONE W/ACETAMINOPHEN [Concomitant]
     Indication: SHOULDER FRACTURE
     Dosage: UNK
  4. NEXIUM [Concomitant]
     Dosage: UNK

REACTIONS (3)
  - Blood glucose increased [Unknown]
  - Memory impairment [Unknown]
  - Expired drug administered [Unknown]
